FAERS Safety Report 7464584-1 (Version None)
Quarter: 2011Q2

REPORT INFORMATION
  Report Type: 
  Country: None (occurrence: None)
  Receive Date: 20110509
  Receipt Date: 20110502
  Transmission Date: 20111010
  Serious: Yes (Life-Threatening, Hospitalization, Other)
  Sender: FDA-Public Use
  Company Number: RO-CELGENEUS-135-21880-11042163

PATIENT
  Sex: Male
  Weight: 79 kg

DRUGS (14)
  1. DEXAMETHASONE [Suspect]
     Indication: MULTIPLE MYELOMA
     Dosage: 40 MILLIGRAM
     Route: 065
     Dates: start: 20110124, end: 20110214
  2. REVLIMID [Suspect]
     Indication: MULTIPLE MYELOMA
     Dosage: 25 MILLIGRAM
     Route: 048
     Dates: start: 20110124, end: 20110331
  3. ACYCLOVIR [Concomitant]
     Indication: ANTIVIRAL PROPHYLAXIS
     Dosage: 400 MILLIGRAM
     Route: 048
     Dates: start: 20110123
  4. CARFILZOMIB [Suspect]
     Indication: MULTIPLE MYELOMA
     Dosage: 40 MILLIGRAM
     Route: 065
     Dates: start: 20110124
  5. CARFILZOMIB [Suspect]
     Dosage: 54 MILLIGRAM
     Route: 065
     Dates: start: 20110131, end: 20110308
  6. DEXAMETHASONE [Suspect]
     Dosage: 40 MILLIGRAM
     Route: 065
     Dates: end: 20110328
  7. EPOETINUM BETA [Concomitant]
     Dosage: 30000 IU (INTERNATIONAL UNIT)
     Route: 058
     Dates: start: 20110126
  8. LANSOPRAZOL [Concomitant]
     Indication: PRODUCT USED FOR UNKNOWN INDICATION
     Dosage: 15 MILLIGRAM
     Route: 048
     Dates: start: 20110123
  9. HELICID [Concomitant]
     Indication: PEPTIC ULCER
     Dosage: 40 MILLIGRAM
     Route: 048
     Dates: start: 20110114, end: 20110124
  10. CIPROFLOXACIN [Concomitant]
     Dosage: 500 MILLIGRAM
     Route: 048
     Dates: start: 20110123
  11. ASPIRIN [Concomitant]
     Indication: ANTICOAGULANT THERAPY
     Dosage: 100 MILLIGRAM
     Route: 048
     Dates: start: 20110123
  12. SPIRONOLACTONE [Concomitant]
     Indication: OEDEMA
     Dosage: 25 MILLIGRAM
     Route: 048
     Dates: start: 20110126
  13. ZOMETA [Concomitant]
     Dosage: 4 MILLIGRAM
     Route: 051
     Dates: start: 20110123
  14. CARFILZOMIB [Suspect]
     Dosage: 54 MILLIGRAM
     Route: 065
     Dates: end: 20110322

REACTIONS (4)
  - ELECTROLYTE IMBALANCE [None]
  - INTESTINAL OBSTRUCTION [None]
  - HYPOALBUMINAEMIA [None]
  - HYPOCALCAEMIA [None]
